FAERS Safety Report 16898676 (Version 1)
Quarter: 2019Q4

REPORT INFORMATION
  Report Type: Report from Study
  Country: US (occurrence: US)
  Receive Date: 20191009
  Receipt Date: 20191009
  Transmission Date: 20200122
  Serious: No
  Sender: FDA-Public Use
  Company Number: US-BEH-2019107736

PATIENT
  Age: 5 Year
  Sex: Male
  Weight: 16.33 kg

DRUGS (3)
  1. HIZENTRA [Suspect]
     Active Substance: HUMAN IMMUNOGLOBULIN G
     Dosage: UNK
     Route: 058
     Dates: start: 20191002
  2. HIZENTRA [Suspect]
     Active Substance: HUMAN IMMUNOGLOBULIN G
     Dosage: UNK
     Route: 058
     Dates: start: 20191002
  3. HIZENTRA [Suspect]
     Active Substance: HUMAN IMMUNOGLOBULIN G
     Indication: HYPOGAMMAGLOBULINAEMIA
     Dosage: 5 GRAM, QOW
     Route: 058
     Dates: start: 20191002

REACTIONS (2)
  - Infusion site extravasation [Recovered/Resolved]
  - Infusion site pruritus [Recovered/Resolved]

NARRATIVE: CASE EVENT DATE: 20191002
